FAERS Safety Report 9159388 (Version 2)
Quarter: 2013Q2

REPORT INFORMATION
  Report Type: Spontaneous
  Country: US (occurrence: US)
  Receive Date: 20130313
  Receipt Date: 20130404
  Transmission Date: 20140414
  Serious: Yes (Hospitalization)
  Sender: FDA-Public Use
  Company Number: PHEH2012US025138

PATIENT
  Age: 85 Year
  Sex: Female
  Weight: 63 kg

DRUGS (2)
  1. GLEEVEC [Suspect]
     Indication: CHRONIC MYELOID LEUKAEMIA
     Dosage: 400 MG DAILY
     Route: 048
     Dates: start: 2009
  2. GLEEVEC [Suspect]
     Dosage: 400 MG DAILY
     Route: 048
     Dates: start: 201010

REACTIONS (24)
  - Chronic obstructive pulmonary disease [Unknown]
  - Procedural pain [Unknown]
  - Hypokinesia [Unknown]
  - Hiatus hernia [Unknown]
  - Pulmonary mass [Unknown]
  - Renal failure chronic [Unknown]
  - Aphasia [Unknown]
  - Pleural effusion [Unknown]
  - Vomiting [Unknown]
  - Blood pressure abnormal [Unknown]
  - Blood creatinine increased [Unknown]
  - Hyperkalaemia [Unknown]
  - Thrombocytopenia [Unknown]
  - Weight decreased [Unknown]
  - Acute respiratory failure [Unknown]
  - Fatigue [Unknown]
  - Dyspnoea [Unknown]
  - Gastrointestinal haemorrhage [Unknown]
  - Sedation [Unknown]
  - Stress [Unknown]
  - Nausea [Unknown]
  - Arthralgia [Unknown]
  - Myalgia [Unknown]
  - Muscular weakness [Unknown]
